FAERS Safety Report 17590008 (Version 2)
Quarter: 2020Q2

REPORT INFORMATION
  Report Type: Report from Study
  Country: None (occurrence: US)
  Receive Date: 20200327
  Receipt Date: 20200406
  Transmission Date: 20200713
  Serious: Yes (Other)
  Sender: FDA-Public Use
  Company Number: US-ABBVIE-20P-163-3307521-00

PATIENT
  Age: 55 Year
  Sex: Female

DRUGS (2)
  1. IMBRUVICA [Suspect]
     Active Substance: IBRUTINIB
     Route: 048
     Dates: start: 20200301
  2. IMBRUVICA [Suspect]
     Active Substance: IBRUTINIB
     Indication: B-CELL SMALL LYMPHOCYTIC LYMPHOMA
     Route: 048
     Dates: start: 20200213

REACTIONS (13)
  - Nasopharyngitis [Unknown]
  - Diarrhoea [Unknown]
  - Arthralgia [Unknown]
  - Cough [Unknown]
  - Spleen disorder [Unknown]
  - Chills [Unknown]
  - Fatigue [Unknown]
  - Emergency care [Unknown]
  - Anxiety [Unknown]
  - Pruritus [Unknown]
  - Productive cough [Unknown]
  - Rhinorrhoea [Unknown]
  - Dizziness [Unknown]

NARRATIVE: CASE EVENT DATE: 2020
